FAERS Safety Report 6631690-0 (Version None)
Quarter: 2010Q1

REPORT INFORMATION
  Report Type: 
  Country: None (occurrence: None)
  Receive Date: 20100312
  Receipt Date: 20100302
  Transmission Date: 20100710
  Serious: Yes (Life-Threatening)
  Sender: FDA-Public Use
  Company Number: CN-PFIZER INC-2010026285

PATIENT
  Age: 89 Year
  Sex: Male

DRUGS (1)
  1. SUTENT [Suspect]
     Indication: LARYNGEAL CANCER
     Dosage: UNK
     Dates: start: 20091115

REACTIONS (1)
  - HYPOTENSION [None]
